FAERS Safety Report 6468148-8 (Version None)
Quarter: 2009Q4

REPORT INFORMATION
  Report Type: 
  Country: None (occurrence: None)
  Receive Date: 20091202
  Receipt Date: 20091123
  Transmission Date: 20100525
  Serious: Yes (Other)
  Sender: FDA-Public Use
  Company Number: GB-BAUSCH-2009BL006226

PATIENT
  Age: 28 Year
  Sex: Female
  Weight: 58 kg

DRUGS (9)
  1. PHENYLEPHRINE [Suspect]
     Indication: DRUG USE FOR UNKNOWN INDICATION
     Route: 042
     Dates: start: 20070121, end: 20070121
  2. CARBETOCIN [Suspect]
     Indication: CAESAREAN SECTION
     Route: 042
     Dates: start: 20070121, end: 20070121
  3. CARBETOCIN [Suspect]
     Indication: POSTPARTUM HAEMORRHAGE
     Route: 042
     Dates: start: 20070121, end: 20070121
  4. EPHEDRINE [Suspect]
     Indication: DRUG USE FOR UNKNOWN INDICATION
     Route: 042
     Dates: start: 20070121, end: 20070121
  5. BUPIVACAINE [Concomitant]
     Indication: SPINAL ANAESTHESIA
     Dates: start: 20070121, end: 20070121
  6. CEFUROXIME [Concomitant]
     Indication: DRUG USE FOR UNKNOWN INDICATION
     Route: 042
     Dates: start: 20070121, end: 20070121
  7. FENTANYL-100 [Concomitant]
     Indication: SPINAL ANAESTHESIA
     Dates: start: 20070121, end: 20070121
  8. LIDOCAINE [Concomitant]
     Indication: LOCAL ANAESTHESIA
     Route: 061
     Dates: start: 20070121, end: 20070121
  9. RANITIDINE [Concomitant]
     Indication: DRUG USE FOR UNKNOWN INDICATION
     Route: 042

REACTIONS (2)
  - MYOCARDIAL INFARCTION [None]
  - TACHYCARDIA [None]
